FAERS Safety Report 19997274 (Version 1)
Quarter: 2021Q4

REPORT INFORMATION
  Report Type: Spontaneous
  Country: GB (occurrence: GB)
  Receive Date: 20211026
  Receipt Date: 20211026
  Transmission Date: 20220303
  Serious: Yes (Hospitalization, Other)
  Sender: FDA-Public Use
  Company Number: GB-MLMSERVICE-20211006-3152075-1?

PATIENT
  Age: 80 Year
  Sex: Male

DRUGS (9)
  1. SIMVASTATIN [Suspect]
     Active Substance: SIMVASTATIN
  2. BUTYLSCOPOLAMINE BROMIDE [Concomitant]
     Active Substance: BUTYLSCOPOLAMINE BROMIDE
     Route: 062
  3. COCODAMOL [Concomitant]
     Active Substance: ACETAMINOPHEN\CODEINE PHOSPHATE
  4. PERINDOPRIL [Concomitant]
     Active Substance: PERINDOPRIL
  5. APIXABAN [Concomitant]
     Active Substance: APIXABAN
  6. HYOSCINE BUTYLBROMIDE 10 mg [Concomitant]
  7. HYALURONIC ACID [Concomitant]
     Active Substance: HYALURONIC ACID
  8. QUININE SULFATE [Concomitant]
     Active Substance: QUININE SULFATE
  9. XAILIN [Concomitant]

REACTIONS (2)
  - Condition aggravated [Recovered/Resolved]
  - Rhabdomyolysis [Recovered/Resolved]
